FAERS Safety Report 21139343 (Version 1)
Quarter: 2022Q3

REPORT INFORMATION
  Report Type: Spontaneous
  Country: GB (occurrence: GB)
  Receive Date: 20220727
  Receipt Date: 20220727
  Transmission Date: 20221027
  Serious: Yes (Hospitalization, Other)
  Sender: FDA-Public Use
  Company Number: GB-MYLANLABS-2022M1048024

PATIENT
  Sex: Male

DRUGS (2)
  1. CLOZARIL [Suspect]
     Active Substance: CLOZAPINE
     Indication: Psychotic disorder
     Dosage: UNK
     Route: 048
     Dates: start: 20220620
  2. CLOZARIL [Suspect]
     Active Substance: CLOZAPINE
     Indication: Personality disorder

REACTIONS (3)
  - Lower respiratory tract infection [Unknown]
  - Myocarditis [Unknown]
  - Off label use [Unknown]
